FAERS Safety Report 6340897-1 (Version None)
Quarter: 2009Q3

REPORT INFORMATION
  Report Type: 
  Country: None (occurrence: None)
  Receive Date: 20090904
  Receipt Date: 20090827
  Transmission Date: 20100115
  Serious: Yes (Disabling, Other)
  Sender: FDA-Public Use
  Company Number: HU-AVENTIS-200919454GDDC

PATIENT
  Age: 51 Year
  Sex: Male
  Weight: 82 kg

DRUGS (7)
  1. LANTUS [Suspect]
     Indication: DIABETES MELLITUS
     Route: 058
     Dates: start: 20080501
  2. ORAL ANTIDIABETICS [Concomitant]
  3. AMARYL [Concomitant]
     Indication: DIABETES MELLITUS
     Route: 048
     Dates: start: 20070101
  4. ASPIRIN [Concomitant]
     Route: 048
     Dates: start: 20080101
  5. TRENTAL [Concomitant]
     Route: 048
     Dates: start: 20080101
  6. COVEREX                            /00790701/ [Concomitant]
     Indication: HYPERTENSION
     Dosage: DOSE QUANTITY: 1
     Route: 048
     Dates: start: 20080101
  7. ATORVASTATIN [Concomitant]
     Route: 047
     Dates: start: 20080101

REACTIONS (1)
  - BLADDER NEOPLASM [None]
